FAERS Safety Report 24239452 (Version 3)
Quarter: 2024Q4

REPORT INFORMATION
  Report Type: Spontaneous
  Country: US (occurrence: US)
  Receive Date: 20240822
  Receipt Date: 20241031
  Transmission Date: 20250114
  Serious: Yes (Hospitalization)
  Sender: AVADEL CNS PHARMACEUTICALS, LLC
  Company Number: US-AVADEL CNS PHARMACEUTICALS, LLC-2024AVA01157

PATIENT
  Sex: Male
  Weight: 71 kg

DRUGS (13)
  1. LUMRYZ [Suspect]
     Active Substance: SODIUM OXYBATE
     Indication: Narcolepsy
     Dosage: 6 G, ONCE NIGHTLY
     Route: 048
     Dates: start: 20240126, end: 20240917
  2. LUMRYZ [Suspect]
     Active Substance: SODIUM OXYBATE
     Indication: Cataplexy
     Dosage: 6 G, ONCE NIGHTLY
     Route: 048
     Dates: start: 20240920, end: 2024
  3. LUMRYZ [Suspect]
     Active Substance: SODIUM OXYBATE
     Indication: Narcolepsy
     Dosage: 7.5 G, ONCE NIGHTLY AT BEDTIME
     Route: 048
     Dates: start: 2024
  4. LUMRYZ [Suspect]
     Active Substance: SODIUM OXYBATE
     Indication: Cataplexy
  5. MODAFINIL [Concomitant]
     Active Substance: MODAFINIL
     Dosage: 100 MG, ONCE DAILY
  6. BUSPAR [Concomitant]
     Active Substance: BUSPIRONE HYDROCHLORIDE
     Dosage: 15 MG, ONCE DAILY
  7. NEXIUM [Concomitant]
     Active Substance: ESOMEPRAZOLE MAGNESIUM
     Dosage: 20 MG, ONCE DAILY
  8. HYDROXYZINE [Concomitant]
     Active Substance: HYDROXYZINE HYDROCHLORIDE
     Dosage: 10 MG, 4X/DAY, AS NEEDED
  9. ADVIL [Concomitant]
     Active Substance: IBUPROFEN
     Dosage: UNK
  10. VITAMINS [Concomitant]
     Active Substance: VITAMINS
     Dosage: UNK
  11. ABILIFY [Concomitant]
     Active Substance: ARIPIPRAZOLE
     Dosage: 5 MG
  12. WELLBUTRIN [Concomitant]
     Active Substance: BUPROPION HYDROCHLORIDE
     Dosage: 450 MG, ONCE DAILY
  13. CLARITIN [Concomitant]
     Active Substance: LORATADINE
     Dosage: 10 MG, ONCE DAILY, AS NEEDED

REACTIONS (6)
  - Nasal septum deviation [Recovered/Resolved]
  - Nasal turbinate hypertrophy [Recovered/Resolved]
  - Upper-airway cough syndrome [Unknown]
  - Nausea [Not Recovered/Not Resolved]
  - Product dose omission issue [Recovered/Resolved]
  - Product administration interrupted [Recovered/Resolved]

NARRATIVE: CASE EVENT DATE: 20240101
